FAERS Safety Report 8765427 (Version 1)
Quarter: 2012Q4

REPORT INFORMATION
  Report Type: 
  Country: BE (occurrence: BE)
  Receive Date: 20120903
  Receipt Date: 20120903
  Transmission Date: 20130627
  Serious: Yes (Other)
  Sender: FDA-Public Use
  Company Number: BE-PFIZER INC-2012214853

PATIENT
  Age: 55 Year
  Sex: Male

DRUGS (1)
  1. EFEXOR EXEL [Suspect]
     Dosage: 75 mg, 1x/day
     Route: 048
     Dates: start: 2007

REACTIONS (1)
  - Haematospermia [Unknown]
